FAERS Safety Report 9160150 (Version 1)
Quarter: 2013Q1

REPORT INFORMATION
  Report Type: Spontaneous
  Country: US (occurrence: US)
  Receive Date: 20130313
  Receipt Date: 20130313
  Transmission Date: 20140127
  Serious: No
  Sender: FDA-Public Use
  Company Number: US-ASTRAZENECA-2013SE14918

PATIENT
  Age: 80 Year
  Sex: Male
  Weight: 87.1 kg

DRUGS (2)
  1. SYMBICORT  PMDI [Suspect]
     Indication: CHRONIC OBSTRUCTIVE PULMONARY DISEASE
     Dosage: 2 PUFFS BID
     Route: 055
  2. LISINOPRIL [Suspect]
     Indication: CARDIOMYOPATHY
     Route: 048

REACTIONS (16)
  - Chronic obstructive pulmonary disease [Unknown]
  - Wheezing [Unknown]
  - Fatigue [Unknown]
  - Abdominal distension [Unknown]
  - Abdominal pain [Unknown]
  - Nausea [Unknown]
  - Diarrhoea [Unknown]
  - Malaise [Unknown]
  - Gastroenteritis viral [Unknown]
  - Cardiomyopathy [Unknown]
  - Tricuspid valve incompetence [Unknown]
  - Vitamin D deficiency [Unknown]
  - International normalised ratio increased [Unknown]
  - Atrial fibrillation [Unknown]
  - Arrhythmia [Unknown]
  - Intentional drug misuse [Unknown]
